FAERS Safety Report 16706056 (Version 3)
Quarter: 2020Q4

REPORT INFORMATION
  Report Type: Spontaneous
  Country: US (occurrence: US)
  Receive Date: 20190815
  Receipt Date: 20201109
  Transmission Date: 20210113
  Serious: No
  Sender: FDA-Public Use
  Company Number: US-PFIZER INC-2019346289

PATIENT
  Age: 7 Year
  Sex: Male

DRUGS (1)
  1. EUCRISA [Suspect]
     Active Substance: CRISABOROLE
     Indication: DERMATITIS ATOPIC
     Dosage: UNK, 2X/DAY (APPLY TWICE A DAY TO AFFECTED AREAS ON BODY (LEGS, ARMS, TRUNK) FOR MAINTENANCE)
     Route: 061

REACTIONS (1)
  - Therapeutic product effect incomplete [Unknown]
